FAERS Safety Report 5551944-9 (Version None)
Quarter: 2007Q4

REPORT INFORMATION
  Report Type: 
  Country: None (occurrence: None)
  Receive Date: 20071129
  Receipt Date: 20070613
  Transmission Date: 20080405
  Serious: Yes (Hospitalization)
  Sender: FDA-Public Use
  Company Number: US200703002074

PATIENT
  Age: 20 Year
  Sex: Male
  Weight: 93.4 kg

DRUGS (9)
  1. ZYPREXA [Suspect]
     Dosage: 10 MG, 15 MG
     Dates: start: 19990318, end: 20021127
  2. ABILIFY [Concomitant]
  3. CLOZARIL [Concomitant]
  4. SEROQUEL [Concomitant]
  5. LEXAPRO [Concomitant]
  6. CELEXA [Concomitant]
  7. REMERON (MIRTAZPINE) [Concomitant]
  8. SERZONE [Concomitant]
  9. ZEBETA [Concomitant]

REACTIONS (2)
  - DIABETES MELLITUS [None]
  - SUICIDE ATTEMPT [None]
